FAERS Safety Report 9774917 (Version 1)
Quarter: 2013Q4

REPORT INFORMATION
  Report Type: Report from Study
  Country: US (occurrence: US)
  Receive Date: 20131220
  Receipt Date: 20131220
  Transmission Date: 20140711
  Serious: Yes (Other)
  Sender: FDA-Public Use
  Company Number: US-ABBVIE-13P-163-1179755-00

PATIENT
  Age: 31 Year
  Sex: Female

DRUGS (5)
  1. HUMIRA [Suspect]
     Indication: COLITIS ULCERATIVE
     Dates: start: 20131031, end: 20131031
  2. HUMIRA [Suspect]
     Dates: start: 20131114, end: 20131114
  3. HUMIRA [Suspect]
     Dates: start: 20131128
  4. APRISO [Concomitant]
     Indication: COLITIS ULCERATIVE
  5. UCERIS [Concomitant]
     Indication: COLITIS ULCERATIVE

REACTIONS (6)
  - Benign neoplasm [Not Recovered/Not Resolved]
  - Rash [Not Recovered/Not Resolved]
  - Injection site bruising [Not Recovered/Not Resolved]
  - Injection site pain [Not Recovered/Not Resolved]
  - Injection site bruising [Not Recovered/Not Resolved]
  - Injection site pain [Unknown]
